FAERS Safety Report 13828944 (Version 1)
Quarter: 2017Q3

REPORT INFORMATION
  Report Type: Spontaneous
  Country: US (occurrence: US)
  Receive Date: 20170802
  Receipt Date: 20170802
  Transmission Date: 20171127
  Serious: Yes (Disabling)
  Sender: FDA-Public Use
  Company Number: None

PATIENT
  Age: 66 Year
  Sex: Male
  Weight: 121 kg

DRUGS (2)
  1. HEPARIN IN 0.45% NACL [Suspect]
     Active Substance: HEPARIN SODIUM\SODIUM CHLORIDE
     Indication: PULMONARY EMBOLISM
     Dosage: ?          OTHER FREQUENCY:UNITS/HR;?
     Route: 041
     Dates: start: 20170730, end: 20170801
  2. LISINOPRIL/HCTZ [Suspect]
     Active Substance: HYDROCHLOROTHIAZIDE\LISINOPRIL

REACTIONS (14)
  - Pleuritic pain [None]
  - Myocardial strain [None]
  - Headache [None]
  - Subdural haematoma [None]
  - Neurological decompensation [None]
  - Hyperhidrosis [None]
  - Pulmonary embolism [None]
  - Brain herniation [None]
  - Loss of consciousness [None]
  - Brain midline shift [None]
  - Syncope [None]
  - Drug withdrawal syndrome [None]
  - Dyspnoea [None]
  - Unresponsive to stimuli [None]

NARRATIVE: CASE EVENT DATE: 20170731
